FAERS Safety Report 13149390 (Version 2)
Quarter: 2017Q1

REPORT INFORMATION
  Report Type: Report from Study
  Country: US (occurrence: US)
  Receive Date: 20170124
  Receipt Date: 20170124
  Transmission Date: 20170428
  Serious: No
  Sender: FDA-Public Use
  Company Number: US-AMGEN-USASL2016177386

PATIENT
  Age: 70 Year
  Sex: Female

DRUGS (2)
  1. REPATHA [Suspect]
     Active Substance: EVOLOCUMAB
     Indication: HYPERCHOLESTEROLAEMIA
     Dosage: 420 MG/3.5 ML, QMO (PUSHTRONEX)
     Route: 065
     Dates: start: 201611
  2. VALTREX [Concomitant]
     Active Substance: VALACYCLOVIR HYDROCHLORIDE

REACTIONS (10)
  - Gait disturbance [Unknown]
  - Pruritus [Not Recovered/Not Resolved]
  - Skin ulcer [Unknown]
  - Joint swelling [Unknown]
  - Urinary tract infection [Unknown]
  - Breast pain [Unknown]
  - Back pain [Unknown]
  - Underdose [Unknown]
  - Pain in extremity [Unknown]
  - Arthralgia [Unknown]

NARRATIVE: CASE EVENT DATE: 201611
